FAERS Safety Report 6983923-9 (Version None)
Quarter: 2010Q3

REPORT INFORMATION
  Report Type: 
  Country: None (occurrence: None)
  Receive Date: 20100914
  Receipt Date: 20090409
  Transmission Date: 20110219
  Serious: No
  Sender: FDA-Public Use
  Company Number: US-WYE-H08928709

PATIENT
  Age: 76 Year
  Sex: Female
  Weight: 72.64 kg

DRUGS (4)
  1. ADVIL PM [Suspect]
     Indication: INSOMNIA
     Dosage: 1 CAPLET PER DAY
     Route: 048
     Dates: start: 20090406, end: 20090408
  2. ADVIL PM [Suspect]
     Indication: ANALGESIC THERAPY
  3. ZOCOR [Concomitant]
  4. ACCUPRIL [Concomitant]

REACTIONS (2)
  - DRUG INEFFECTIVE [None]
  - PSYCHOMOTOR HYPERACTIVITY [None]
